FAERS Safety Report 24678979 (Version 1)
Quarter: 2024Q4

REPORT INFORMATION
  Report Type: Spontaneous
  Country: US (occurrence: US)
  Receive Date: 20241129
  Receipt Date: 20241129
  Transmission Date: 20250115
  Serious: No
  Sender: ABBVIE
  Company Number: US-ABBVIE-6023567

PATIENT
  Age: 90 Year
  Sex: Female

DRUGS (1)
  1. RESTASIS [Suspect]
     Active Substance: CYCLOSPORINE
     Indication: Dry eye
     Dosage: ONE DROP IN EACH EYE ONCE IN THE MORNING, ONCE IN THE EVEING, DOSAGE: 0.4 ML, ?FORM STRENGTH- 0.5...
     Route: 047
     Dates: start: 20240920

REACTIONS (3)
  - Product colour issue [Not Recovered/Not Resolved]
  - Product container issue [Not Recovered/Not Resolved]
  - Poor quality product administered [Not Recovered/Not Resolved]

NARRATIVE: CASE EVENT DATE: 20241126
